FAERS Safety Report 6659886-2 (Version None)
Quarter: 2010Q1

REPORT INFORMATION
  Report Type: 
  Country: None (occurrence: None)
  Receive Date: 20100330
  Receipt Date: 20100330
  Transmission Date: 20100710
  Serious: Yes (Life-Threatening, Hospitalization, Disabling, Other)
  Sender: FDA-Public Use
  Company Number: None

PATIENT
  Age: 87 Year
  Sex: Male
  Weight: 95.2554 kg

DRUGS (2)
  1. CEPHALEXIN [Suspect]
     Indication: BRONCHITIS
     Dosage: PO (1 DOSE)
     Route: 048
     Dates: start: 20100328, end: 20100328
  2. RAMIPRIL [Suspect]
     Indication: HYPERTENSION
     Dosage: PO (DAILY)
     Route: 048
     Dates: start: 20070101, end: 20100329

REACTIONS (6)
  - DRUG INTERACTION [None]
  - DYSPHAGIA [None]
  - DYSPNOEA [None]
  - SPEECH DISORDER [None]
  - SWOLLEN TONGUE [None]
  - UPPER RESPIRATORY TRACT INFECTION [None]
